FAERS Safety Report 13036309 (Version 1)
Quarter: 2016Q4

REPORT INFORMATION
  Report Type: Spontaneous
  Country: PL (occurrence: PL)
  Receive Date: 20161216
  Receipt Date: 20161216
  Transmission Date: 20170207
  Serious: Yes (Other)
  Sender: FDA-Public Use
  Company Number: PL-JNJFOC-20161211377

PATIENT

DRUGS (2)
  1. ZYPREXA [Suspect]
     Active Substance: OLANZAPINE
     Indication: PRODUCT USED FOR UNKNOWN INDICATION
     Route: 065
  2. RISPOLEPT [Suspect]
     Active Substance: RISPERIDONE
     Indication: PRODUCT USED FOR UNKNOWN INDICATION
     Route: 065

REACTIONS (38)
  - Psychotic disorder [Unknown]
  - Agitation [Unknown]
  - Constipation [Unknown]
  - Persecutory delusion [Unknown]
  - Feeling abnormal [Unknown]
  - Photophobia [Unknown]
  - Gynaecomastia [Unknown]
  - Erectile dysfunction [Unknown]
  - Loss of libido [Unknown]
  - Anxiety [Unknown]
  - Obesity [Unknown]
  - Aggression [Unknown]
  - Memory impairment [Unknown]
  - Suicidal ideation [Unknown]
  - Mental impairment [Unknown]
  - Increased appetite [Unknown]
  - Restlessness [Unknown]
  - Drug ineffective [Unknown]
  - Musculoskeletal discomfort [Unknown]
  - Tremor [Unknown]
  - Vision blurred [Unknown]
  - Urinary incontinence [Unknown]
  - Disturbance in attention [Unknown]
  - Dysgeusia [Unknown]
  - Irritability [Unknown]
  - Dyspnoea [Unknown]
  - Food allergy [Unknown]
  - Dry mouth [Unknown]
  - Infertility [Unknown]
  - Amenorrhoea [Unknown]
  - Sexual dysfunction [Unknown]
  - Sleep apnoea syndrome [Unknown]
  - Insomnia [Unknown]
  - Seasonal allergy [Unknown]
  - Asthenia [Unknown]
  - Fatigue [Unknown]
  - Blood prolactin increased [Unknown]
  - Depression [Unknown]
